FAERS Safety Report 5115786-0 (Version None)
Quarter: 2006Q3

REPORT INFORMATION
  Report Type: 
  Country: None (occurrence: None)
  Receive Date: 20060927
  Receipt Date: 20060919
  Transmission Date: 20061208
  Serious: Yes (Life-Threatening, Hospitalization)
  Sender: FDA-Public Use
  Company Number: FR-GILEAD-2006-0010245

PATIENT
  Age: 53 Year
  Sex: Male
  Weight: 82 kg

DRUGS (6)
  1. VIREAD [Suspect]
     Route: 048
     Dates: start: 20060516
  2. KALETRA [Concomitant]
     Dates: start: 20060516
  3. EPIVIR [Concomitant]
     Dates: start: 20060516
  4. EFFEXOR [Concomitant]
     Indication: DEPRESSION
     Dates: start: 20051001
  5. ATARAX [Concomitant]
     Indication: DEPRESSION
  6. LEXOMIL [Concomitant]
     Indication: DEPRESSION

REACTIONS (4)
  - DEPRESSED LEVEL OF CONSCIOUSNESS [None]
  - DIALYSIS [None]
  - NEUROLOGICAL SYMPTOM [None]
  - RENAL FAILURE ACUTE [None]
